FAERS Safety Report 4555365-7 (Version None)
Quarter: 2005Q1

REPORT INFORMATION
  Report Type: 
  Country: None (occurrence: None)
  Receive Date: 20050118
  Receipt Date: 20050118
  Transmission Date: 20050727
  Serious: No
  Sender: FDA-Public Use
  Company Number: None

PATIENT
  Sex: Male

DRUGS (4)
  1. ISOTRETINOIN [Suspect]
     Indication: ACNE
     Dosage: 40 MG PO BID
     Route: 048
     Dates: start: 20041115
  2. ISOTRETINOIN [Suspect]
     Indication: ACNE
     Dosage: 40 MG PO BID
     Route: 048
     Dates: start: 20041213
  3. ISOTRETINOIN [Suspect]
     Indication: ACNE
     Dosage: 40 MG PO BID
     Route: 048
     Dates: start: 20050110
  4. . [Concomitant]

REACTIONS (1)
  - THERAPY NON-RESPONDER [None]
